FAERS Safety Report 6787934-8 (Version None)
Quarter: 2010Q2

REPORT INFORMATION
  Report Type: 
  Country: None (occurrence: None)
  Receive Date: 20100623
  Receipt Date: 20070928
  Transmission Date: 20101027
  Serious: No
  Sender: FDA-Public Use
  Company Number: US-PFIZER INC-2007081189

PATIENT
  Sex: Female
  Weight: 65.909 kg

DRUGS (7)
  1. DEPO-PROVERA SUSPENSION/INJ [Suspect]
     Indication: CONTRACEPTION
     Route: 030
     Dates: start: 20061201
  2. DEPO-PROVERA SUSPENSION/INJ [Suspect]
     Indication: MENSTRUAL DISCOMFORT
  3. IRON [Concomitant]
  4. VITAMINS [Concomitant]
  5. TRAZODONE HYDROCHLORIDE [Concomitant]
  6. LEVOXYL [Concomitant]
  7. LISINOPRIL [Concomitant]

REACTIONS (1)
  - METRORRHAGIA [None]
